FAERS Safety Report 8721877 (Version 2)
Quarter: 2013Q1

REPORT INFORMATION
  Report Type: Report from Study
  Country: US (occurrence: US)
  Receive Date: 20120814
  Receipt Date: 20130125
  Transmission Date: 20140127
  Serious: Yes (Other)
  Sender: FDA-Public Use
  Company Number: US-ABBOTT-12P-163-0965845-00

PATIENT
  Sex: Male
  Weight: 76.2 kg

DRUGS (12)
  1. HUMIRA 40 MG/0.8 ML PEN [Suspect]
     Indication: CROHN^S DISEASE
     Route: 058
     Dates: start: 201111
  2. MERCAPTOPURINE [Concomitant]
     Indication: PRODUCT USED FOR UNKNOWN INDICATION
  3. ACYCLOVIR [Concomitant]
     Indication: PRODUCT USED FOR UNKNOWN INDICATION
     Route: 048
  4. LORAZEPAM [Concomitant]
     Indication: PRODUCT USED FOR UNKNOWN INDICATION
     Dosage: ONCE EVERY 6 HOURS AS NEEDED, ORAL OR SUBLINGUAL
     Route: 048
  5. ONDANSETRON [Concomitant]
     Indication: PRODUCT USED FOR UNKNOWN INDICATION
     Route: 048
  6. OXYCODONE [Concomitant]
     Indication: PRODUCT USED FOR UNKNOWN INDICATION
     Dosage: EVERY 4 HOURS AS NEEDED
     Route: 048
  7. POTASSIUM CHLORIDE [Concomitant]
     Indication: PRODUCT USED FOR UNKNOWN INDICATION
     Route: 048
  8. PROCHLORPERAZINE [Concomitant]
     Indication: PRODUCT USED FOR UNKNOWN INDICATION
     Dosage: 10 MG EVERY 6 HOURS AS NEEDED
     Route: 048
  9. AMBIEN [Concomitant]
     Indication: PRODUCT USED FOR UNKNOWN INDICATION
     Dosage: AT HOUR OF SLEEP AS NEEDED
     Route: 048
  10. PROPOFOL [Concomitant]
     Indication: COLONOSCOPY
     Dosage: 300 MG THROUGHOUT PROCEDURE
     Route: 042
     Dates: start: 20120511, end: 20120511
  11. VERSED [Concomitant]
     Indication: ASPIRATION BONE MARROW
     Route: 042
  12. FENTANYL [Concomitant]
     Indication: ASPIRATION BONE MARROW
     Route: 042

REACTIONS (11)
  - Plasmablastic lymphoma [Unknown]
  - Hypoaesthesia [Unknown]
  - Leukocytosis [Unknown]
  - Blood creatinine increased [Unknown]
  - Anal sphincter atony [Unknown]
  - Anal skin tags [Unknown]
  - Anal cancer [Unknown]
  - Anogenital dysplasia [Unknown]
  - Inflammatory bowel disease [Unknown]
  - Sinusitis [Unknown]
  - Large intestinal stenosis [Unknown]
